FAERS Safety Report 7678926-5 (Version None)
Quarter: 2011Q3

REPORT INFORMATION
  Report Type: 
  Country: None (occurrence: None)
  Receive Date: 20110812
  Receipt Date: 20110808
  Transmission Date: 20111222
  Serious: No
  Sender: FDA-Public Use
  Company Number: US-BIOGENIDEC-2010BI034530

PATIENT
  Sex: Male

DRUGS (2)
  1. TYSABRI [Suspect]
     Indication: MULTIPLE SCLEROSIS
     Route: 042
     Dates: start: 20060927, end: 20090914
  2. TYSABRI [Suspect]
     Route: 042
     Dates: start: 20100630

REACTIONS (3)
  - GAIT DISTURBANCE [None]
  - BALANCE DISORDER [None]
  - FALL [None]
